FAERS Safety Report 9429754 (Version 1)
Quarter: 2013Q3

REPORT INFORMATION
  Report Type: Report from Study
  Country: US (occurrence: US)
  Receive Date: 20130730
  Receipt Date: 20130730
  Transmission Date: 20140515
  Serious: Yes (Hospitalization)
  Sender: FDA-Public Use
  Company Number: US-ACTELION-A-NJ2013-86218

PATIENT
  Age: 49 Year
  Sex: Female

DRUGS (4)
  1. TRACLEER [Suspect]
     Indication: COR PULMONALE CHRONIC
     Dosage: UNK
     Route: 048
  2. LOPRESSOR [Concomitant]
  3. SILDENAFIL [Concomitant]
  4. REMODULIN [Concomitant]

REACTIONS (7)
  - Respiratory failure [Unknown]
  - Asthenia [Recovering/Resolving]
  - Pain in extremity [Unknown]
  - Headache [Unknown]
  - Flushing [Unknown]
  - Pain in jaw [Unknown]
  - Hypotension [Unknown]
